FAERS Safety Report 17399573 (Version 7)
Quarter: 2021Q1

REPORT INFORMATION
  Report Type: Report from Study
  Country: BE (occurrence: BE)
  Receive Date: 20200211
  Receipt Date: 20210325
  Transmission Date: 20210419
  Serious: Yes (Life-Threatening, Hospitalization, Other)
  Sender: FDA-Public Use
  Company Number: BE-ROCHE-2510359

PATIENT
  Age: 31 Year
  Sex: Female
  Weight: 78 kg

DRUGS (12)
  1. DAFALGAN [Concomitant]
     Active Substance: ACETAMINOPHEN
     Dates: start: 2018
  2. CLEXANE [Concomitant]
     Active Substance: ENOXAPARIN SODIUM
     Dates: start: 20200117
  3. MONOFREE DEXAMETHASON [Concomitant]
     Active Substance: DEXAMETHASONE SODIUM PHOSPHATE
     Dates: start: 20200116
  4. BEVACIZUMAB. [Suspect]
     Active Substance: BEVACIZUMAB
     Indication: CERVIX CANCER METASTATIC
     Dosage: MOST RECENT DOSE ON 24/DEC/2019
     Route: 041
     Dates: start: 20190912, end: 20200116
  5. VITAPANTOL [Concomitant]
     Dates: start: 20190919, end: 20200122
  6. IMODIUM [Concomitant]
     Active Substance: LOPERAMIDE HYDROCHLORIDE
     Dates: start: 20191014
  7. TERRAMYCIN [Concomitant]
     Active Substance: OXYTETRACYCLINE\OXYTETRACYCLINE HYDROCHLORIDE
     Dates: start: 20200106, end: 20200115
  8. TISOTUMAB VEDOTIN. [Suspect]
     Active Substance: TISOTUMAB VEDOTIN
     Indication: CERVIX CANCER METASTATIC
     Dosage: MOST RECENT DOSE ON 24/DEC/2019
     Route: 041
     Dates: start: 20190912, end: 20200116
  9. MOVICOL [Concomitant]
     Active Substance: POLYETHYLENE GLYCOL 3350\POTASSIUM CHLORIDE\SODIUM BICARBONATE\SODIUM CHLORIDE
     Dates: start: 20200119, end: 20200120
  10. LITICAN [Concomitant]
     Active Substance: ALIZAPRIDE HYDROCHLORIDE
     Dates: start: 20200117, end: 20200122
  11. OCUGEL (BELGIUM) [Concomitant]
     Dates: start: 20190910, end: 202001
  12. MAGNESIUM SULPHATE [Concomitant]
     Active Substance: MAGNESIUM SULFATE
     Dates: start: 20200120, end: 20200122

REACTIONS (4)
  - Large intestine infection [Recovered/Resolved]
  - Dry eye [Recovered/Resolved]
  - Tumour inflammation [Not Recovered/Not Resolved]
  - Disease progression [Not Recovered/Not Resolved]

NARRATIVE: CASE EVENT DATE: 20191205
